FAERS Safety Report 4319216-8 (Version None)
Quarter: 2004Q1

REPORT INFORMATION
  Report Type: 
  Country: None (occurrence: None)
  Receive Date: 20040316
  Receipt Date: 20040303
  Transmission Date: 20041129
  Serious: Yes (Hospitalization)
  Sender: FDA-Public Use
  Company Number: FR_031103132

PATIENT
  Age: 76 Year
  Sex: Male

DRUGS (1)
  1. CIALIS [Suspect]
     Dosage: 2 DSG FORM AS NEEDED
     Dates: start: 20030616, end: 20030616

REACTIONS (10)
  - ALCOHOLISM [None]
  - ATRIAL FIBRILLATION [None]
  - ATRIAL FLUTTER [None]
  - GAMMA-GLUTAMYLTRANSFERASE INCREASED [None]
  - GRAND MAL CONVULSION [None]
  - MEAN CELL VOLUME INCREASED [None]
  - PULMONARY OEDEMA [None]
  - SOMNOLENCE [None]
  - TONIC CONVULSION [None]
  - URINARY INCONTINENCE [None]
